FAERS Safety Report 21539842 (Version 1)
Quarter: 2022Q4

REPORT INFORMATION
  Report Type: Report from Study
  Country: DE (occurrence: DE)
  Receive Date: 20221102
  Receipt Date: 20221102
  Transmission Date: 20230112
  Serious: Yes (Other)
  Sender: FDA-Public Use
  Company Number: DE-BAYER-2022A151215

PATIENT
  Age: 83 Year
  Sex: Male

DRUGS (19)
  1. EYLEA [Suspect]
     Active Substance: AFLIBERCEPT
     Indication: Neovascular age-related macular degeneration
     Dosage: 50 UL, LEFT EYE, SOLUTION FOR INJECTION
     Route: 031
     Dates: start: 20200831
  2. EYLEA [Suspect]
     Active Substance: AFLIBERCEPT
     Dosage: 50 UL, LEFT EYE, SOLUTION FOR INJECTION
     Route: 031
     Dates: start: 20201109
  3. EYLEA [Suspect]
     Active Substance: AFLIBERCEPT
     Dosage: 50 UL, LEFT EYE, SOLUTION FOR INJECTION
     Route: 031
     Dates: start: 20201214
  4. EYLEA [Suspect]
     Active Substance: AFLIBERCEPT
     Dosage: 50 UL, LEFT EYE, SOLUTION FOR INJECTION
     Route: 031
     Dates: start: 20201216
  5. EYLEA [Suspect]
     Active Substance: AFLIBERCEPT
     Dosage: 50 UL, LEFT EYE, SOLUTION FOR INJECTION
     Route: 031
     Dates: start: 20210517
  6. EYLEA [Suspect]
     Active Substance: AFLIBERCEPT
     Dosage: 50 UL, LEFT EYE, SOLUTION FOR INJECTION
     Route: 031
     Dates: start: 20210628
  7. EYLEA [Suspect]
     Active Substance: AFLIBERCEPT
     Dosage: 50 UL, LEFT EYE, SOLUTION FOR INJECTION
     Route: 031
     Dates: start: 20220309
  8. EYLEA [Suspect]
     Active Substance: AFLIBERCEPT
     Dosage: 50 UL, LEFT EYE, SOLUTION FOR INJECTION
     Route: 031
     Dates: start: 20220503
  9. FLOXAL [Concomitant]
     Active Substance: OFLOXACIN
     Indication: Product used for unknown indication
     Dosage: 1 DROP, QID
     Route: 061
     Dates: start: 20200831, end: 20200907
  10. FLOXAL [Concomitant]
     Active Substance: OFLOXACIN
     Dosage: 1 DROP, QID
     Route: 061
     Dates: start: 20200907, end: 20200914
  11. FLOXAL [Concomitant]
     Active Substance: OFLOXACIN
     Dosage: 1 DROP, QID
     Route: 061
     Dates: start: 20201109, end: 20201116
  12. FLOXAL [Concomitant]
     Active Substance: OFLOXACIN
     Dosage: 1 DROP, QID
     Route: 061
     Dates: start: 20201214, end: 20201222
  13. FLOXAL [Concomitant]
     Active Substance: OFLOXACIN
     Dosage: 1 DROP, QID
     Route: 061
     Dates: start: 20210517, end: 20210525
  14. FLOXAL [Concomitant]
     Active Substance: OFLOXACIN
     Dosage: 1 DROP, QID
     Route: 061
     Dates: start: 20210629, end: 20210705
  15. FLOXAL [Concomitant]
     Active Substance: OFLOXACIN
     Dosage: 1 DROP, QID
     Route: 061
     Dates: start: 20220504, end: 20220510
  16. METOPROLOL SUCCINATE [Concomitant]
     Active Substance: METOPROLOL SUCCINATE
     Indication: Product used for unknown indication
     Dosage: MORNING AND EVENING HALF A TABLET
     Route: 048
     Dates: start: 2010
  17. ELIQUIS [Concomitant]
     Active Substance: APIXABAN
     Indication: Product used for unknown indication
     Dosage: UNK
     Route: 048
     Dates: start: 2010
  18. TERABLOCK [Concomitant]
     Indication: Product used for unknown indication
  19. GENT OPHTAL [Concomitant]
     Indication: Product used for unknown indication
     Dosage: 1 DROP, QID
     Route: 061
     Dates: start: 20220519, end: 20220524

REACTIONS (1)
  - Vitreous haemorrhage [Recovered/Resolved]

NARRATIVE: CASE EVENT DATE: 20220504
